FAERS Safety Report 9425663 (Version 1)
Quarter: 2013Q3

REPORT INFORMATION
  Report Type: Spontaneous
  Country: US (occurrence: US)
  Receive Date: 20130729
  Receipt Date: 20130729
  Transmission Date: 20140515
  Serious: Yes (Other)
  Sender: FDA-Public Use
  Company Number: US-TEVA-421249USA

PATIENT
  Age: 33 Year
  Sex: Female

DRUGS (1)
  1. PARAGARD 380A [Suspect]
     Indication: CONTRACEPTION
     Route: 015
     Dates: start: 200606, end: 20071228

REACTIONS (3)
  - Pregnancy with contraceptive device [Recovered/Resolved]
  - Drug ineffective [Recovered/Resolved]
  - Foetal death [Recovered/Resolved]
